FAERS Safety Report 8371430-0 (Version None)
Quarter: 2012Q2

REPORT INFORMATION
  Report Type: 
  Country: None (occurrence: None)
  Receive Date: 20120518
  Receipt Date: 20120515
  Transmission Date: 20120825
  Serious: Yes (Hospitalization)
  Sender: FDA-Public Use
  Company Number: BR-PFIZER INC-2012118752

PATIENT
  Age: 62 Year
  Sex: Female

DRUGS (7)
  1. LIPITOR [Suspect]
     Indication: BLOOD CHOLESTEROL
     Dosage: 40 MG, UNK
     Route: 048
     Dates: start: 20050101
  2. XALATAN [Suspect]
     Indication: GLAUCOMA
     Dosage: 3 UG (TWO DROPS) 1X/DAY
     Route: 047
     Dates: start: 20080101
  3. OLMESARTAN MEDOXOMIL AND HYDROCHLOROTHIZIDE [Suspect]
     Indication: HYPERTENSION
     Dosage: [OLMESARTAN MEDOXOMIL 40MG] / [HYDROCHLOROTHIAZIDE 25MG] (ONE TABLET), 1X/DAY
     Route: 048
     Dates: start: 20110801
  4. COMBIGAN [Concomitant]
     Indication: GLAUCOMA
     Dosage: UNK
     Dates: start: 20080101
  5. ASPIRIN [Concomitant]
     Indication: CARDIAC DISORDER
     Dosage: UNK
     Route: 048
     Dates: start: 20110101
  6. AZOPT [Concomitant]
     Indication: GLAUCOMA
     Dosage: UNK
     Dates: start: 20080101
  7. METOPROLOL SUCCINATE [Concomitant]
     Indication: CARDIAC DISORDER
     Dosage: UNK
     Dates: start: 20110101

REACTIONS (2)
  - UTERINE DISORDER [None]
  - CARDIAC DISORDER [None]
